FAERS Safety Report 19158041 (Version 1)
Quarter: 2021Q2

REPORT INFORMATION
  Report Type: Spontaneous
  Country: GB (occurrence: GB)
  Receive Date: 20210420
  Receipt Date: 20210420
  Transmission Date: 20210717
  Serious: Yes (Other)
  Sender: FDA-Public Use
  Company Number: GB-ACCORD-221451

PATIENT
  Age: 39 Year
  Sex: Female

DRUGS (12)
  1. CHLORPHENAMINE/CHLORPHENAMINE MALEATE/CHLORPHENAMINE RESINATE/CHLORPHENAMINE TANNATE [Concomitant]
     Active Substance: CHLORPHENIRAMINE
  2. OXALIPLATIN. [Suspect]
     Active Substance: OXALIPLATIN
     Indication: COLON CANCER
     Dosage: 254MG IRINOTECAN, 350MG FOLINIC ACID, 76MG OXALIPLATIN AND 3720MG FLUOROURACIL
     Route: 042
     Dates: start: 20200120
  3. BEVACIZUMAB. [Suspect]
     Active Substance: BEVACIZUMAB
     Indication: COLON CANCER
     Dosage: 252.5MG
     Route: 042
     Dates: start: 20200120
  4. FOLINIC ACID [Suspect]
     Active Substance: LEUCOVORIN
     Indication: COLON CANCER
     Dosage: 254MG IRINOTECAN, 350MG FOLINIC ACID, 76MG OXALIPLATIN AND 3720MG FLUOROURACIL
     Route: 042
     Dates: start: 20200120
  5. DEXAMETHASONE. [Concomitant]
     Active Substance: DEXAMETHASONE
     Indication: ILL-DEFINED DISORDER
  6. APREPITANT. [Concomitant]
     Active Substance: APREPITANT
     Indication: ILL-DEFINED DISORDER
  7. ATROPINE. [Concomitant]
     Active Substance: ATROPINE
     Indication: ILL-DEFINED DISORDER
  8. ONDANSETRON [Concomitant]
     Active Substance: ONDANSETRON
     Indication: ILL-DEFINED DISORDER
  9. FLUOROURACIL. [Suspect]
     Active Substance: FLUOROURACIL
     Indication: COLON CANCER
     Dosage: 254MG IRINOTECAN, 350MG FOLINIC ACID, 76MG OXALIPLATIN AND 3720MG FLUOROURACIL
     Route: 042
     Dates: start: 20200120
  10. IRINOTECAN [Suspect]
     Active Substance: IRINOTECAN
     Indication: COLON CANCER
     Route: 042
     Dates: start: 20200120
  11. LIPEGFILGRASTIM [Concomitant]
     Active Substance: LIPEGFILGRASTIM
     Indication: ILL-DEFINED DISORDER
  12. LORAZEPAM. [Concomitant]
     Active Substance: LORAZEPAM
     Indication: ILL-DEFINED DISORDER

REACTIONS (8)
  - Neuropathy peripheral [Not Recovered/Not Resolved]
  - Diarrhoea [Not Recovered/Not Resolved]
  - Malaise [Unknown]
  - Gastrointestinal sounds abnormal [Unknown]
  - Gastrointestinal pain [Not Recovered/Not Resolved]
  - Oral pain [Not Recovered/Not Resolved]
  - Abdominal pain [Not Recovered/Not Resolved]
  - Gastrointestinal motility disorder [Not Recovered/Not Resolved]
